FAERS Safety Report 13595257 (Version 2)
Quarter: 2017Q2

REPORT INFORMATION
  Report Type: Spontaneous
  Country: LT (occurrence: LT)
  Receive Date: 20170531
  Receipt Date: 20170605
  Transmission Date: 20170830
  Serious: Yes (Hospitalization, Disabling)
  Sender: FDA-Public Use
  Company Number: LT-ROCHE-1929613

PATIENT
  Age: 12 Year
  Sex: Male

DRUGS (5)
  1. CLEMASTINE [Concomitant]
     Active Substance: CLEMASTINE
     Indication: FOOD ALLERGY
     Route: 065
  2. DOXEPIN [Concomitant]
     Active Substance: DOXEPIN
     Indication: URTICARIA CHRONIC
     Route: 065
     Dates: start: 20170505
  3. XOLAIR [Suspect]
     Active Substance: OMALIZUMAB
     Indication: CHRONIC SPONTANEOUS URTICARIA
     Dosage: MOST RECNT DOSE ON 11/APR/2017.
     Route: 058
     Dates: start: 20170411
  4. PREDNISOLONUM [Concomitant]
     Active Substance: PREDNISOLONE
     Indication: FOOD ALLERGY
     Route: 065
  5. LEVOCETIRIZIN [Concomitant]
     Active Substance: LEVOCETIRIZINE DIHYDROCHLORIDE
     Indication: FOOD ALLERGY
     Route: 065

REACTIONS (8)
  - Oedema [Unknown]
  - Wheezing [Unknown]
  - Muscle spasms [Unknown]
  - Swelling [Unknown]
  - Pruritus [Unknown]
  - Hepatosplenomegaly [Unknown]
  - Serum sickness [Recovered/Resolved]
  - Asthma [Unknown]

NARRATIVE: CASE EVENT DATE: 20170420
